FAERS Safety Report 9895510 (Version 1)
Quarter: 2014Q1

REPORT INFORMATION
  Report Type: Spontaneous
  Country: US (occurrence: US)
  Receive Date: 20140213
  Receipt Date: 20140213
  Transmission Date: 20141002
  Serious: No
  Sender: FDA-Public Use
  Company Number: US-BRISTOL-MYERS SQUIBB COMPANY-19430339

PATIENT
  Age: 70 Year
  Sex: Female

DRUGS (7)
  1. ORENCIA FOR INJ [Suspect]
     Indication: RHEUMATOID ARTHRITIS
     Dates: start: 2011
  2. REMICADE [Concomitant]
     Indication: RHEUMATOID ARTHRITIS
  3. SIMPONI [Concomitant]
     Indication: RHEUMATOID ARTHRITIS
  4. ENBREL [Concomitant]
     Indication: RHEUMATOID ARTHRITIS
  5. RITUXAN [Concomitant]
     Indication: RHEUMATOID ARTHRITIS
  6. HUMIRA [Concomitant]
     Indication: RHEUMATOID ARTHRITIS
  7. METHOTREXATE [Concomitant]
     Indication: RHEUMATOID ARTHRITIS

REACTIONS (1)
  - Drug ineffective [Unknown]
